FAERS Safety Report 5602984-2 (Version None)
Quarter: 2008Q1

REPORT INFORMATION
  Report Type: 
  Country: None (occurrence: None)
  Receive Date: 20080125
  Receipt Date: 20080114
  Transmission Date: 20080703
  Serious: Yes (Hospitalization)
  Sender: FDA-Public Use
  Company Number: BR-PFIZER INC-2007091754

PATIENT
  Sex: Female
  Weight: 50 kg

DRUGS (2)
  1. PIROXICAM [Suspect]
     Indication: PAIN
     Route: 060
     Dates: start: 20070801, end: 20071001
  2. TRIQUILAR [Concomitant]
     Route: 048

REACTIONS (1)
  - NEPHROLITHIASIS [None]
